FAERS Safety Report 7619739-X (Version None)
Quarter: 2011Q3

REPORT INFORMATION
  Report Type: 
  Country: None (occurrence: None)
  Receive Date: 20110719
  Receipt Date: 20110711
  Transmission Date: 20111222
  Serious: Yes (Other)
  Sender: FDA-Public Use
  Company Number: DE-TEVA-290147GER

PATIENT
  Sex: Male

DRUGS (2)
  1. ACETAMINOPHEN [Concomitant]
     Indication: INFECTION
  2. LEFLUNOMID-RATIOPHARM [Suspect]
     Dosage: 20 MILLIGRAM;
     Route: 048

REACTIONS (1)
  - GAMMA-GLUTAMYLTRANSFERASE INCREASED [None]
